FAERS Safety Report 8468870-8 (Version None)
Quarter: 2012Q2

REPORT INFORMATION
  Report Type: 
  Country: None (occurrence: None)
  Receive Date: 20120626
  Receipt Date: 20110705
  Transmission Date: 20120825
  Serious: Yes (Other)
  Sender: FDA-Public Use
  Company Number: US-ROCHE-788838

PATIENT
  Age: 46 Year
  Sex: Female
  Weight: 164 kg

DRUGS (11)
  1. TAXOL [Concomitant]
     Indication: BREAST CANCER
     Dates: start: 20050901, end: 20060101
  2. XELODA [Suspect]
     Dosage: FREQUENCY: DAILY
     Route: 048
  3. ZOMETA [Concomitant]
     Dates: start: 20101201, end: 20110501
  4. HERCEPTIN [Suspect]
     Route: 042
     Dates: start: 20100801, end: 20101201
  5. ADRIAMYCIN PFS [Concomitant]
     Indication: BREAST CANCER
     Dates: start: 20050901, end: 20060101
  6. ZOMETA [Concomitant]
  7. HERCEPTIN [Suspect]
     Route: 042
     Dates: start: 20101201, end: 20110501
  8. XELODA [Suspect]
     Indication: BREAST CANCER METASTATIC
     Route: 048
     Dates: start: 20100801, end: 20101201
  9. ZOMETA [Concomitant]
     Indication: BREAST CANCER METASTATIC
     Dates: start: 20100801, end: 20101201
  10. HERCEPTIN [Suspect]
     Indication: BREAST CANCER METASTATIC
     Route: 042
     Dates: start: 20050901, end: 20060101
  11. HERCEPTIN [Suspect]
     Route: 042

REACTIONS (3)
  - BLOOD POTASSIUM DECREASED [None]
  - BREAST MASS [None]
  - FUNGAL INFECTION [None]
